FAERS Safety Report 4804002-2 (Version None)
Quarter: 2005Q3

REPORT INFORMATION
  Report Type: 
  Country: None (occurrence: None)
  Receive Date: 20050920
  Receipt Date: 20050810
  Transmission Date: 20060218
  Serious: No
  Sender: FDA-Public Use
  Company Number: US-YAMANOUCHI-YPA20050401

PATIENT
  Age: 69 Year
  Sex: Female
  Weight: 65.7716 kg

DRUGS (9)
  1. VESICARE [Suspect]
     Indication: HYPERTONIC BLADDER
     Dosage: 5 MG QD PO
     Route: 048
     Dates: start: 20020710
  2. HABITROL [Concomitant]
  3. NORVASC [Concomitant]
  4. ISOPHANE INSULIN [Concomitant]
  5. REGULAR INSULIN [Concomitant]
  6. DIOVAN [Concomitant]
  7. ZANTAC [Concomitant]
  8. LIPITOR [Concomitant]
  9. TRAVATAN [Concomitant]

REACTIONS (1)
  - ALLERGIC COUGH [None]
